FAERS Safety Report 20712544 (Version 1)
Quarter: 2022Q2

REPORT INFORMATION
  Report Type: Spontaneous
  Country: US (occurrence: US)
  Receive Date: 20220415
  Receipt Date: 20220415
  Transmission Date: 20220720
  Serious: No
  Sender: FDA-Public Use
  Company Number: US-TAKEDA-2022TUS023234

PATIENT
  Sex: Male
  Weight: 77 kg

DRUGS (4)
  1. VYVANSE [Suspect]
     Active Substance: LISDEXAMFETAMINE DIMESYLATE
     Indication: Attention deficit hyperactivity disorder
     Dosage: 40 MILLIGRAM, 5/WEEK
     Route: 065
  2. TRINTELLIX [Suspect]
     Active Substance: VORTIOXETINE HYDROBROMIDE
     Indication: Depression
     Dosage: 5 MILLIGRAM, QD
     Route: 065
  3. TRINTELLIX [Suspect]
     Active Substance: VORTIOXETINE HYDROBROMIDE
     Indication: Anxiety
     Dosage: 10 MILLIGRAM, QD
     Route: 065
  4. TRINTELLIX [Suspect]
     Active Substance: VORTIOXETINE HYDROBROMIDE
     Indication: Feeling abnormal

REACTIONS (2)
  - Poor quality sleep [Unknown]
  - Therapeutic product effect incomplete [Unknown]
